FAERS Safety Report 8147665 (Version 2)
Quarter: 2013Q3

REPORT INFORMATION
  Report Type: Report from Study
  Country: US (occurrence: US)
  Receive Date: 20110922
  Receipt Date: 20130829
  Transmission Date: 20140515
  Serious: Yes (Hospitalization)
  Sender: FDA-Public Use
  Company Number: US-ASTRAZENECA-2010SE52153

PATIENT
  Age: 33 Year
  Sex: Female
  Weight: 54.4 kg

DRUGS (9)
  1. SEROQUEL XR [Suspect]
     Indication: BIPOLAR DISORDER
     Route: 048
     Dates: end: 2008
  2. SEROQUEL XR [Suspect]
     Indication: DEPRESSION
     Route: 048
     Dates: end: 2008
  3. SEROQUEL XR [Suspect]
     Indication: BIPOLAR DISORDER
     Route: 048
     Dates: start: 2008, end: 2009
  4. SEROQUEL XR [Suspect]
     Indication: DEPRESSION
     Route: 048
     Dates: start: 2008, end: 2009
  5. SEROQUEL XR [Suspect]
     Indication: BIPOLAR DISORDER
     Route: 048
     Dates: start: 2009, end: 20130821
  6. SEROQUEL XR [Suspect]
     Indication: DEPRESSION
     Route: 048
     Dates: start: 2009, end: 20130821
  7. ASPIRIN [Suspect]
     Route: 065
  8. LEXAPRO [Concomitant]
     Route: 065
  9. CITALOPRAM [Concomitant]

REACTIONS (9)
  - Vomiting [Recovered/Resolved]
  - Dysphagia [Recovered/Resolved]
  - Depressed mood [Unknown]
  - Drug hypersensitivity [Unknown]
  - Malaise [Unknown]
  - Weight decreased [Unknown]
  - Aphagia [Unknown]
  - Drug dose omission [Unknown]
  - Drug ineffective [Unknown]
